FAERS Safety Report 6577951-5 (Version None)
Quarter: 2010Q1

REPORT INFORMATION
  Report Type: 
  Country: None (occurrence: None)
  Receive Date: 20100211
  Receipt Date: 20100203
  Transmission Date: 20100710
  Serious: Yes (Hospitalization, Other)
  Sender: FDA-Public Use
  Company Number: US-BAYER-200942795NA

PATIENT
  Age: 66 Year
  Sex: Male

DRUGS (6)
  1. NEXAVAR [Suspect]
     Indication: RENAL CELL CARCINOMA
     Dosage: TOTAL DAILY DOSE: 800 MG  UNIT DOSE: 200 MG
     Route: 048
     Dates: start: 20091204, end: 20100114
  2. NEXAVAR [Suspect]
     Dosage: UNIT DOSE: 200 MG
     Route: 048
     Dates: start: 20100118
  3. NEXAVAR [Suspect]
     Dosage: TOTAL DAILY DOSE: 800 MG  UNIT DOSE: 200 MG
     Route: 048
     Dates: start: 20100101
  4. BLOOD PRESSURE MEDICATION NOS [Concomitant]
  5. INSULIN [Concomitant]
  6. ORAL MEDICATION FOR DIABETES [Concomitant]

REACTIONS (13)
  - ABDOMINAL PAIN UPPER [None]
  - APHONIA [None]
  - BLOOD GLUCOSE INCREASED [None]
  - BLOOD PRESSURE SYSTOLIC INCREASED [None]
  - CONSTIPATION [None]
  - DIARRHOEA [None]
  - DRY SKIN [None]
  - DYSPHONIA [None]
  - HYPERAESTHESIA [None]
  - INTESTINAL OBSTRUCTION [None]
  - PRURITUS [None]
  - SKIN EXFOLIATION [None]
  - STOMATITIS [None]
